FAERS Safety Report 8328489-6 (Version None)
Quarter: 2012Q2

REPORT INFORMATION
  Report Type: 
  Country: None (occurrence: None)
  Receive Date: 20120502
  Receipt Date: 20120424
  Transmission Date: 20120825
  Serious: Yes (Hospitalization)
  Sender: FDA-Public Use
  Company Number: US-BAYER-2012-007052

PATIENT
  Age: 40 Year
  Sex: Female
  Weight: 58.957 kg

DRUGS (8)
  1. YAZ [Suspect]
     Indication: PREMENSTRUAL SYNDROME
     Dosage: UNK
     Dates: start: 20070401, end: 20100218
  2. YAZ [Suspect]
  3. YAZ [Suspect]
     Indication: DYSMENORRHOEA
  4. ONDANSETRON [Concomitant]
     Indication: PYELONEPHRITIS
  5. NEXIUM [Concomitant]
     Indication: GASTROOESOPHAGEAL REFLUX DISEASE
     Dosage: UNK
     Dates: start: 20100101
  6. KETOROLAC TROMETHAMINE [Concomitant]
     Indication: PYELONEPHRITIS
  7. EXCEDRIN [CAFFEINE,PARACETAMOL] [Concomitant]
     Dosage: UNK
     Dates: start: 19950101
  8. LEVOFLOXACIN [Concomitant]
     Indication: PYELONEPHRITIS

REACTIONS (8)
  - ABDOMINAL PAIN [None]
  - CHOLECYSTITIS ACUTE [None]
  - NAUSEA [None]
  - VOMITING [None]
  - CHOLELITHIASIS [None]
  - PANCREATITIS [None]
  - BILE DUCT STENOSIS [None]
  - BACK PAIN [None]
